FAERS Safety Report 6309702-3 (Version None)
Quarter: 2009Q3

REPORT INFORMATION
  Report Type: 
  Country: None (occurrence: None)
  Receive Date: 20090813
  Receipt Date: 20090813
  Transmission Date: 20100115
  Serious: No
  Sender: FDA-Public Use
  Company Number: None

PATIENT
  Age: 68 Year
  Sex: Female
  Weight: 58.9676 kg

DRUGS (3)
  1. TRAMADOL HCL [Suspect]
     Indication: BACK PAIN
     Dosage: 50MG TID PO
     Route: 048
     Dates: start: 20070122, end: 20090812
  2. TRAMADOL HCL [Suspect]
     Indication: PAIN IN EXTREMITY
     Dosage: 50MG TID PO
     Route: 048
     Dates: start: 20070122, end: 20090812
  3. TRAMADOL HCL [Suspect]
     Indication: SURGERY
     Dosage: 50MG TID PO
     Route: 048
     Dates: start: 20070122, end: 20090812

REACTIONS (3)
  - BREAKTHROUGH PAIN [None]
  - INADEQUATE ANALGESIA [None]
  - PRODUCT SUBSTITUTION ISSUE [None]
